FAERS Safety Report 11878054 (Version 1)
Quarter: 2015Q4

REPORT INFORMATION
  Report Type: Spontaneous
  Country: KR (occurrence: KR)
  Receive Date: 20151230
  Receipt Date: 20151230
  Transmission Date: 20160305
  Serious: Yes (Hospitalization)
  Sender: FDA-Public Use
  Company Number: KR-AMGEN-KORCT2015139357

PATIENT
  Age: 42 Year
  Sex: Female
  Weight: 86.3 kg

DRUGS (25)
  1. G-LASTA [Suspect]
     Active Substance: PEGFILGRASTIM
     Indication: FEBRILE NEUTROPENIA
     Dosage: 6 MG, 1X/3WEEKS
     Route: 058
     Dates: start: 20151011, end: 20151011
  2. CYCLOPHOSPHAMIDE. [Suspect]
     Active Substance: CYCLOPHOSPHAMIDE
     Dosage: 980 MG, UNK
     Route: 042
     Dates: start: 20151031, end: 20151031
  3. TOBRAMYCIN. [Suspect]
     Active Substance: TOBRAMYCIN
     Indication: PRODUCT USED FOR UNKNOWN INDICATION
     Dosage: 200 MG, UNK
     Route: 042
     Dates: start: 20151016, end: 20151017
  4. G-LASTA [Suspect]
     Active Substance: PEGFILGRASTIM
     Dosage: 6 MG, 1X/3WEEKS
     Route: 058
     Dates: start: 20151101, end: 20151101
  5. DOXORUBICIN [Suspect]
     Active Substance: DOXORUBICIN
     Dosage: 98 MG, UNK
     Route: 042
     Dates: start: 20151121, end: 20151121
  6. FILGRASTIM [Suspect]
     Active Substance: FILGRASTIM
     Dosage: 150 MUG, UNK
     Route: 058
     Dates: start: 20151127, end: 20151128
  7. CEFOBACTAM [Suspect]
     Active Substance: CEFOPERAZONE SODIUM\SULBACTAM SODIUM
     Indication: PRODUCT USED FOR UNKNOWN INDICATION
     Dosage: 2 G, UNK
     Route: 042
     Dates: start: 20151016, end: 20151017
  8. TOBRAMYCIN. [Suspect]
     Active Substance: TOBRAMYCIN
     Dosage: 200 MG, UNK
     Route: 042
     Dates: start: 20151127, end: 20151128
  9. DOCETAXEL. [Suspect]
     Active Substance: DOCETAXEL
     Dosage: 147 MG, UNK
     Route: 042
     Dates: start: 20151121, end: 20151121
  10. CEFOBACTAM [Suspect]
     Active Substance: CEFOPERAZONE SODIUM\SULBACTAM SODIUM
     Dosage: 2 G, UNK
     Route: 042
     Dates: start: 20151106, end: 20151108
  11. DOXORUBICIN [Suspect]
     Active Substance: DOXORUBICIN
     Dosage: 98 MG, UNK
     Route: 042
     Dates: start: 20151212, end: 20151212
  12. DOXORUBICIN [Suspect]
     Active Substance: DOXORUBICIN
     Indication: PRODUCT USED FOR UNKNOWN INDICATION
     Dosage: 98 MG, UNK
     Route: 042
     Dates: start: 20151010, end: 20151010
  13. CYCLOPHOSPHAMIDE. [Suspect]
     Active Substance: CYCLOPHOSPHAMIDE
     Indication: PRODUCT USED FOR UNKNOWN INDICATION
     Dosage: 980 MG, UNK
     Route: 042
     Dates: start: 20151010, end: 20151010
  14. FILGRASTIM [Suspect]
     Active Substance: FILGRASTIM
     Dosage: 150 MUG, UNK
     Route: 058
     Dates: start: 20151106, end: 20151108
  15. CEFOBACTAM [Suspect]
     Active Substance: CEFOPERAZONE SODIUM\SULBACTAM SODIUM
     Dosage: 2 G, UNK
     Route: 042
     Dates: start: 20151127, end: 20151128
  16. TOBRAMYCIN. [Suspect]
     Active Substance: TOBRAMYCIN
     Dosage: 200 MG, UNK
     Route: 042
     Dates: start: 20151106, end: 20151108
  17. DOCETAXEL. [Suspect]
     Active Substance: DOCETAXEL
     Indication: PRODUCT USED FOR UNKNOWN INDICATION
     Dosage: 147 MG, UNK
     Route: 042
     Dates: start: 20151010, end: 20151010
  18. CYCLOPHOSPHAMIDE. [Suspect]
     Active Substance: CYCLOPHOSPHAMIDE
     Dosage: 980 MG, UNK
     Route: 042
     Dates: start: 20151121, end: 20151121
  19. CYCLOPHOSPHAMIDE. [Suspect]
     Active Substance: CYCLOPHOSPHAMIDE
     Dosage: 980 MG, UNK
     Route: 042
     Dates: start: 20151212, end: 20151212
  20. FILGRASTIM [Suspect]
     Active Substance: FILGRASTIM
     Indication: PRODUCT USED FOR UNKNOWN INDICATION
     Dosage: 150 MUG, UNK
     Route: 058
     Dates: start: 20151016, end: 20151017
  21. G-LASTA [Suspect]
     Active Substance: PEGFILGRASTIM
     Dosage: 6 MG, 1X/3WEEKS
     Route: 058
     Dates: start: 20151122, end: 20151122
  22. DOCETAXEL. [Suspect]
     Active Substance: DOCETAXEL
     Dosage: 147 MG, UNK
     Route: 042
     Dates: start: 20151031, end: 20151031
  23. DOCETAXEL. [Suspect]
     Active Substance: DOCETAXEL
     Dosage: 147 MG, UNK
     Route: 042
     Dates: start: 20151212, end: 20151212
  24. DOXORUBICIN [Suspect]
     Active Substance: DOXORUBICIN
     Dosage: 98 MG, UNK
     Route: 042
     Dates: start: 20151031, end: 20151031
  25. G-LASTA [Suspect]
     Active Substance: PEGFILGRASTIM
     Dosage: 6 MG, 1X/3WEEKS
     Route: 058
     Dates: start: 20151213, end: 20151213

REACTIONS (1)
  - Neutropenia [Recovered/Resolved]

NARRATIVE: CASE EVENT DATE: 20151218
